FAERS Safety Report 25849099 (Version 1)
Quarter: 2025Q3

REPORT INFORMATION
  Report Type: Spontaneous
  Country: US (occurrence: US)
  Receive Date: 20250925
  Receipt Date: 20250925
  Transmission Date: 20251021
  Serious: Yes (Hospitalization)
  Sender: ELI LILLY AND COMPANY
  Company Number: US-ELI_LILLY_AND_COMPANY-US202509013635

PATIENT
  Age: 62 Year
  Sex: Male

DRUGS (2)
  1. IXEKIZUMAB [Suspect]
     Active Substance: IXEKIZUMAB
     Indication: Psoriatic arthropathy
     Route: 065
  2. LINEZOLID [Suspect]
     Active Substance: LINEZOLID
     Indication: Scrotal cellulitis
     Route: 065

REACTIONS (4)
  - Scrotal cellulitis [Recovered/Resolved]
  - Thrombophlebitis septic [Recovered/Resolved]
  - Ear infection [Unknown]
  - Drug eruption [Unknown]
